FAERS Safety Report 24823237 (Version 2)
Quarter: 2025Q1

REPORT INFORMATION
  Report Type: Spontaneous
  Country: US (occurrence: US)
  Receive Date: 20250109
  Receipt Date: 20250204
  Transmission Date: 20250409
  Serious: No
  Sender: BIOVITRUM
  Company Number: US-BIOVITRUM-2025-US-000257

PATIENT
  Age: 81 Year
  Sex: Male

DRUGS (1)
  1. VONJO [Suspect]
     Active Substance: PACRITINIB
     Indication: Myeloproliferative neoplasm
     Route: 048
     Dates: start: 20241219

REACTIONS (4)
  - Diarrhoea [Unknown]
  - Anxiety [Unknown]
  - Asthenia [Unknown]
  - Haemoglobin decreased [Unknown]
